FAERS Safety Report 22592939 (Version 1)
Quarter: 2023Q2

REPORT INFORMATION
  Report Type: Spontaneous
  Country: GB (occurrence: GB)
  Receive Date: 20230613
  Receipt Date: 20230613
  Transmission Date: 20230721
  Serious: No
  Sender: FDA-Public Use
  Company Number: None

PATIENT
  Age: 43 Year
  Sex: Female
  Weight: 63.4 kg

DRUGS (11)
  1. TOLVAPTAN [Suspect]
     Active Substance: TOLVAPTAN
     Indication: Congenital cystic kidney disease
     Dosage: 45 MILLIGRAM, QD (ONE DAY) (TABLET),JINARC
     Route: 048
     Dates: start: 20180108
  2. TOLVAPTAN [Suspect]
     Active Substance: TOLVAPTAN
     Dosage: 15 MILLIGRAM, QD (ONE DAY) (TABLET)
     Route: 048
     Dates: start: 20180108
  3. TOLVAPTAN [Suspect]
     Active Substance: TOLVAPTAN
     Dosage: 60 MILLIGRAM, QD (ONE DAY) (TABLET)
     Route: 048
     Dates: start: 20180205
  4. TOLVAPTAN [Suspect]
     Active Substance: TOLVAPTAN
     Dosage: 30 MILLIGRAM, QD (ONE DAY) (TABLET)
     Route: 048
     Dates: start: 20180205
  5. TOLVAPTAN [Suspect]
     Active Substance: TOLVAPTAN
     Dosage: 90 MILLIGRAM, QD (ONE DAY) (TABLET)
     Route: 048
     Dates: start: 20180305
  6. TOLVAPTAN [Suspect]
     Active Substance: TOLVAPTAN
     Dosage: 30 MILLIGRAM, QD (ONE DAY) (TABLET)
     Route: 048
     Dates: start: 20180305
  7. TOLVAPTAN [Suspect]
     Active Substance: TOLVAPTAN
     Dosage: 60 MILLIGRAM, QD  (ONE DAY) (TABLET)
     Route: 048
     Dates: start: 20180322, end: 20180809
  8. TOLVAPTAN [Suspect]
     Active Substance: TOLVAPTAN
     Dosage: 30 MILLIGRAM, QD  (ONE DAY) (TABLET)
     Route: 048
     Dates: start: 20180322, end: 20180809
  9. CANDESARTAN [Concomitant]
     Active Substance: CANDESARTAN
     Indication: Hypertension
     Dosage: 8 MILLIGRAM, QD (1 DAY)
     Route: 065
     Dates: start: 20160601
  10. FERROUS SULFATE [Concomitant]
     Active Substance: FERROUS SULFATE
     Indication: Iron deficiency
     Dosage: 200 MILLIGRAM, BID
     Route: 065
     Dates: start: 20160706
  11. TRANEXAMIC ACID [Concomitant]
     Active Substance: TRANEXAMIC ACID
     Indication: Heavy menstrual bleeding
     Dosage: 500 MILLIGRAM (ONE MONTH)
     Route: 048
     Dates: start: 20170201

REACTIONS (2)
  - Liver function test abnormal [Unknown]
  - Hypovolaemia [Recovered/Resolved]

NARRATIVE: CASE EVENT DATE: 20180322
